FAERS Safety Report 4319627-0 (Version None)
Quarter: 2004Q1

REPORT INFORMATION
  Report Type: 
  Country: None (occurrence: None)
  Receive Date: 20040316
  Receipt Date: 20040227
  Transmission Date: 20041129
  Serious: Yes (Death, Hospitalization)
  Sender: FDA-Public Use
  Company Number: USA030638927

PATIENT
  Age: 73 Year
  Sex: Female

DRUGS (8)
  1. ZYPREXA [Suspect]
     Indication: AGITATION
     Dosage: 10 MG/2 DAY
     Dates: end: 20020511
  2. ZYPREXA [Suspect]
     Indication: DEMENTIA ALZHEIMER'S TYPE
     Dosage: 10 MG/2 DAY
     Dates: end: 20020511
  3. EXELON [Concomitant]
  4. NEURONTIN [Concomitant]
  5. NORVASC [Concomitant]
  6. ASPIRIN [Concomitant]
  7. VITAMINT E [Concomitant]
  8. VITAMIN B COMPLEX CAP [Concomitant]

REACTIONS (2)
  - COMA [None]
  - HYPERSOMNIA [None]
